FAERS Safety Report 4377462-1 (Version None)
Quarter: 2004Q2

REPORT INFORMATION
  Report Type: 
  Country: None (occurrence: None)
  Receive Date: 20040615
  Receipt Date: 20040510
  Transmission Date: 20050107
  Serious: Yes (Hospitalization, Other)
  Sender: FDA-Public Use
  Company Number: PHEH2004US05129

PATIENT
  Age: 69 Year
  Sex: Female
  Weight: 91 kg

DRUGS (9)
  1. DIOVAN [Suspect]
     Dosage: 160 MG, QD
     Route: 048
     Dates: start: 20040301
  2. DIOVAN [Suspect]
     Dosage: 80 MG, QD
     Route: 048
     Dates: start: 20030101, end: 20040301
  3. LASIX [Concomitant]
  4. ZANTAC [Concomitant]
  5. LEXAPRO [Concomitant]
  6. MULTIVITAMIN [Concomitant]
  7. POTASSIUM [Concomitant]
  8. STOOL SOFTENER [Concomitant]
  9. THYROID TAB [Concomitant]

REACTIONS (8)
  - CARDIAC STRESS TEST ABNORMAL [None]
  - CARDIOVASCULAR DISORDER [None]
  - CHEST PAIN [None]
  - CORONARY ARTERY DISEASE [None]
  - CORONARY ARTERY OCCLUSION [None]
  - ECHOCARDIOGRAM ABNORMAL [None]
  - STENT PLACEMENT [None]
  - WOUND COMPLICATION [None]
